FAERS Safety Report 13233765 (Version 4)
Quarter: 2022Q2

REPORT INFORMATION
  Report Type: Spontaneous
  Country: US (occurrence: US)
  Receive Date: 20170215
  Receipt Date: 20220425
  Transmission Date: 20220721
  Serious: Yes (Death, Hospitalization, Other)
  Sender: FDA-Public Use
  Company Number: US-CIPLA LTD.-2017US01927

PATIENT

DRUGS (1)
  1. BUPROPION [Suspect]
     Active Substance: BUPROPION
     Dosage: 21,000 MG, UNK
     Route: 048

REACTIONS (13)
  - Death [Fatal]
  - Apnoea [Unknown]
  - Papilloedema [Unknown]
  - Ventricular fibrillation [Unknown]
  - Brain injury [Unknown]
  - Brain oedema [Unknown]
  - Intentional overdose [Unknown]
  - Seizure [Unknown]
  - Cardiac arrest [Unknown]
  - Suicide attempt [Unknown]
  - Coma [Unknown]
  - Electroencephalogram abnormal [Unknown]
  - Electrocardiogram QT prolonged [Unknown]
